FAERS Safety Report 6317831-3 (Version None)
Quarter: 2009Q3

REPORT INFORMATION
  Report Type: 
  Country: None (occurrence: None)
  Receive Date: 20090821
  Receipt Date: 20090605
  Transmission Date: 20100115
  Serious: No
  Sender: FDA-Public Use
  Company Number: US-BAYER-200922849NA

PATIENT
  Sex: Female

DRUGS (2)
  1. YAZ [Suspect]
     Indication: ENDOMETRIOSIS
     Route: 048
     Dates: start: 20090201, end: 20090501
  2. PROGESTERONE CREAM NOS [Concomitant]
     Indication: ENDOMETRIOSIS

REACTIONS (2)
  - NO ADVERSE EVENT [None]
  - VAGINAL HAEMORRHAGE [None]
